FAERS Safety Report 14026782 (Version 4)
Quarter: 2018Q2

REPORT INFORMATION
  Report Type: Report from Study
  Country: CA (occurrence: CA)
  Receive Date: 20170929
  Receipt Date: 20180620
  Transmission Date: 20180711
  Serious: Yes (Other)
  Sender: FDA-Public Use
  Company Number: CA-NOVEN PHARMACEUTICALS, INC.-CA2017000914

PATIENT

DRUGS (21)
  1. RIVA AMLODIPINE [Concomitant]
  2. TYLENOL [Concomitant]
     Active Substance: ACETAMINOPHEN
  3. AMOXICIL-CLAVUL GI [Concomitant]
     Active Substance: AMOXICILLIN\CLAVULANATE POTASSIUM
     Dosage: 500 MG, BID
     Route: 048
  4. APO AMITRIPTYLINE [Concomitant]
     Active Substance: AMITRIPTYLINE
  5. ESTRADIOL/NORETHISTERONE ACETATE [Suspect]
     Active Substance: ESTRADIOL\NORETHINDRONE ACETATE
     Indication: PRODUCT USED FOR UNKNOWN INDICATION
     Dosage: 1 DF (140/50 0.14MG-0.05MG), 2/WK
     Route: 065
  6. VITAMIN E [Concomitant]
     Active Substance: .ALPHA.-TOCOPHEROL
     Dosage: 400 MG IU, ONCE DAILY FOR A WEEK
     Dates: start: 201610
  7. ATENOLOL. [Suspect]
     Active Substance: ATENOLOL
     Indication: PRODUCT USED FOR UNKNOWN INDICATION
     Dosage: UNK, UNKNOWN
     Route: 065
  8. RIVA LANSOPRAZOLE [Concomitant]
  9. LYRICA [Concomitant]
     Active Substance: PREGABALIN
  10. NAPROXEN. [Concomitant]
     Active Substance: NAPROXEN
  11. RIVA-CYCLOPRINE [Concomitant]
     Indication: PRODUCT USED FOR UNKNOWN INDICATION
  12. AMOXICIL-CLAVUL GI [Concomitant]
     Active Substance: AMOXICILLIN\CLAVULANATE POTASSIUM
     Dosage: 500 MG, TID
     Route: 048
  13. SANDOSTATIN [Suspect]
     Active Substance: OCTREOTIDE ACETATE
     Indication: CARCINOID SYNDROME
     Dosage: 100 ?G, TID
     Route: 058
     Dates: start: 201710
  14. CANDESARTAN PLUS 1A PHARMA [Suspect]
     Active Substance: CANDESARTAN CILEXETIL\HYDROCHLOROTHIAZIDE
     Indication: PRODUCT USED FOR UNKNOWN INDICATION
     Dosage: 32 MG/25 MG, QD
     Route: 048
  15. APO NAPROXEN [Concomitant]
     Active Substance: NAPROXEN
  16. DULOXETINE. [Suspect]
     Active Substance: DULOXETINE
     Indication: PAIN IN EXTREMITY
     Dosage: UNK, UNKNOWN
     Route: 065
     Dates: start: 20170520
  17. EURO ASA EC [Concomitant]
  18. AVAMYS [Concomitant]
     Active Substance: FLUTICASONE FUROATE
  19. SYNTHROID [Concomitant]
     Active Substance: LEVOTHYROXINE SODIUM
  20. RIVA ROSUVASTATIN [Concomitant]
  21. LAX-A-DAY [Concomitant]

REACTIONS (18)
  - Productive cough [Unknown]
  - Contusion [Unknown]
  - Dyspnoea [Unknown]
  - Fatigue [Unknown]
  - Hot flush [Unknown]
  - Constipation [Unknown]
  - Bursitis [Unknown]
  - Musculoskeletal pain [Unknown]
  - Sinusitis [Recovered/Resolved]
  - Somnolence [Unknown]
  - Renal impairment [Unknown]
  - Acne [Not Recovered/Not Resolved]
  - Pruritus [Not Recovered/Not Resolved]
  - Dizziness [Unknown]
  - Abdominal distension [Unknown]
  - Rhinorrhoea [Unknown]
  - Back pain [Unknown]
  - Nausea [Recovered/Resolved]

NARRATIVE: CASE EVENT DATE: 20160926
